FAERS Safety Report 6416901-9 (Version None)
Quarter: 2009Q4

REPORT INFORMATION
  Report Type: 
  Country: None (occurrence: None)
  Receive Date: 20091015
  Receipt Date: 20091001
  Transmission Date: 20100525
  Serious: Yes (Death, Other)
  Sender: FDA-Public Use
  Company Number: THYM-1001243

PATIENT
  Age: 62 Year
  Sex: Female
  Weight: 40 kg

DRUGS (2)
  1. THYMOGLOBULIN [Suspect]
     Indication: BONE MARROW CONDITIONING REGIMEN
     Dosage: , INTRAVENOUS
     Route: 042
     Dates: start: 20090516, end: 20090101
  2. THYMOGLOBULIN [Suspect]
     Indication: BONE MARROW CONDITIONING REGIMEN
     Dosage: , INTRAVENOUS
     Route: 042
     Dates: start: 20090618, end: 20090618

REACTIONS (3)
  - ACUTE GRAFT VERSUS HOST DISEASE [None]
  - MALIGNANT NEOPLASM PROGRESSION [None]
  - T-CELL LYMPHOMA [None]
